FAERS Safety Report 10336973 (Version 1)
Quarter: 2014Q3

REPORT INFORMATION
  Report Type: Spontaneous
  Country: US (occurrence: US)
  Receive Date: 20140723
  Receipt Date: 20140723
  Transmission Date: 20150326
  Serious: No
  Sender: FDA-Public Use
  Company Number: US-PFIZER INC-2014202857

PATIENT
  Age: 87 Year
  Sex: Female
  Weight: 57.14 kg

DRUGS (7)
  1. TIMOLOL [Concomitant]
     Active Substance: TIMOLOL
     Dosage: 1 GTT, DAILY
     Route: 047
  2. PRAVASTATIN [Concomitant]
     Active Substance: PRAVASTATIN\PRAVASTATIN SODIUM
     Dosage: 20 MG, DAILY
  3. TOVIAZ [Suspect]
     Active Substance: FESOTERODINE FUMARATE
     Indication: POLLAKIURIA
     Dosage: 4 MG, DAILY
     Dates: start: 20140715
  4. LEVOTHYROXINE [Concomitant]
     Active Substance: LEVOTHYROXINE
     Dosage: 25 UG, DAILY
  5. FENOFIBRIC ACID. [Concomitant]
     Active Substance: FENOFIBRIC ACID
     Dosage: 134 MG, DAILY
  6. ESTRACE [Concomitant]
     Active Substance: ESTRADIOL
     Dosage: UNK (1 APPLICATION), WEEKLY
  7. OMEPRAZOLE. [Concomitant]
     Active Substance: OMEPRAZOLE
     Dosage: 40 MG, DAILY

REACTIONS (3)
  - Dysphonia [Unknown]
  - Dry mouth [Unknown]
  - Abdominal pain lower [Unknown]

NARRATIVE: CASE EVENT DATE: 20140715
